FAERS Safety Report 5924869-4 (Version None)
Quarter: 2008Q4

REPORT INFORMATION
  Report Type: 
  Country: None (occurrence: None)
  Receive Date: 20081017
  Receipt Date: 20081017
  Transmission Date: 20090506
  Serious: Yes (Hospitalization)
  Sender: FDA-Public Use
  Company Number: None

PATIENT
  Sex: Female
  Weight: 44.4 kg

DRUGS (2)
  1. XELODA [Suspect]
     Indication: COLON CANCER STAGE III
     Dosage: 1500MG BID PO
     Route: 048
     Dates: start: 20081010, end: 20081013
  2. OXALIPLATIN [Suspect]
     Indication: COLON CANCER STAGE III
     Dosage: 100MG ONCE IV
     Route: 042
     Dates: start: 20081009, end: 20081009

REACTIONS (2)
  - ACUTE MYOCARDIAL INFARCTION [None]
  - SINUS TACHYCARDIA [None]
